FAERS Safety Report 16265396 (Version 2)
Quarter: 2019Q2

REPORT INFORMATION
  Report Type: Spontaneous
  Country: US (occurrence: US)
  Receive Date: 20190502
  Receipt Date: 20190606
  Transmission Date: 20190711
  Serious: No
  Sender: FDA-Public Use
  Company Number: US-SA-2019SA117578

PATIENT
  Age: 42 Year
  Sex: Male
  Weight: 102.5 kg

DRUGS (22)
  1. DUPIXENT [Suspect]
     Active Substance: DUPILUMAB
     Indication: ASTHMA
     Dosage: UNK UNK, QOW
     Route: 058
     Dates: start: 201901
  2. AMMONIUM LACTATE. [Concomitant]
     Active Substance: AMMONIUM LACTATE
     Indication: DRY SKIN
     Dosage: UNK UNK, PRN
     Route: 061
  3. EPINEPHRINE. [Concomitant]
     Active Substance: EPINEPHRINE
     Dosage: 0.3 ML, PRN
     Route: 030
  4. OLOPATADINE. [Concomitant]
     Active Substance: OLOPATADINE
     Dosage: 1 GTT DROPS, QD IN BOTH EYES
  5. SUCRALFATE. [Concomitant]
     Active Substance: SUCRALFATE
     Dosage: 10 ML, QID
     Route: 048
  6. ALBUTEROL [SALBUTAMOL] [Concomitant]
     Active Substance: ALBUTEROL
     Indication: WHEEZING
     Dosage: 1 VIAL IF NEEDED
  7. CYANOCOBALAMIN. [Concomitant]
     Active Substance: CYANOCOBALAMIN
     Dosage: 1 DF, QD
     Route: 048
  8. VITAMIN D2 [Concomitant]
     Active Substance: ERGOCALCIFEROL
     Dosage: 1 DF, QW
     Route: 048
  9. FLUTICASONE FUROATE [Concomitant]
     Active Substance: FLUTICASONE FUROATE
     Dosage: 100MCG
     Route: 048
  10. LOPERAMIDE [Concomitant]
     Active Substance: LOPERAMIDE
     Indication: DIARRHOEA
     Dosage: 1 DF, QID
     Route: 048
  11. ESOMEPRAZOLE. [Concomitant]
     Active Substance: ESOMEPRAZOLE MAGNESIUM
     Dosage: 1 DF, QD
     Route: 048
  12. SPIRIVA [Concomitant]
     Active Substance: TIOTROPIUM BROMIDE MONOHYDRATE
  13. LIDOCAINE. [Concomitant]
     Active Substance: LIDOCAINE
     Indication: MUSCULOSKELETAL PAIN
     Dosage: UNK UNK, Q4H,IF NEEDED
     Route: 061
  14. RIZATRIPTAN. [Concomitant]
     Active Substance: RIZATRIPTAN
     Indication: MIGRAINE
     Dosage: 1 DF, PRN
     Route: 048
  15. ZAFIRLUKAST. [Concomitant]
     Active Substance: ZAFIRLUKAST
     Dosage: 1 DF, BID
     Route: 048
  16. PROVENTIL HFA [SALBUTAMOL] [Concomitant]
     Indication: WHEEZING
     Dosage: 2 PUFFS
  17. TIOTROPIUM BROMIDE [Concomitant]
     Active Substance: TIOTROPIUM BROMIDE
     Dosage: 2.5 MCG, QD
     Route: 055
  18. ZOFRAN [Concomitant]
     Active Substance: ONDANSETRON HYDROCHLORIDE
     Dosage: 1 DF, Q12H
     Route: 048
  19. AZELASTIN [Concomitant]
     Dosage: 137 MCG, 2 SPRAY
  20. CLONAZEPAM. [Concomitant]
     Active Substance: CLONAZEPAM
     Dosage: 1/2 PO QID PRN 1 PO QHS 90 TABLET
     Route: 048
  21. BECLOMETHASONE DIPROPIONATE [BECLOMETASONE] [Concomitant]
     Dosage: 160MCG
     Route: 045
  22. OXYCODONE AND ACETAMINOPHEN [Concomitant]
     Active Substance: ACETAMINOPHEN\OXYCODONE HYDROCHLORIDE
     Indication: PAIN
     Dosage: 1 DF, Q6H
     Route: 048

REACTIONS (5)
  - Pain [Unknown]
  - Rash [Unknown]
  - Dry eye [Unknown]
  - Eye pain [Unknown]
  - Oral herpes [Unknown]

NARRATIVE: CASE EVENT DATE: 20190424
